FAERS Safety Report 8081875-4 (Version None)
Quarter: 2012Q1

REPORT INFORMATION
  Report Type: 
  Country: None (occurrence: None)
  Receive Date: 20120130
  Receipt Date: 20120124
  Transmission Date: 20120608
  Serious: No
  Sender: FDA-Public Use
  Company Number: US-BAYER-2012-009144

PATIENT

DRUGS (2)
  1. ALEVE (CAPLET) [Suspect]
     Indication: MUSCLE STRAIN
  2. ALEVE (CAPLET) [Suspect]
     Indication: ARTHRALGIA
     Dosage: 6 DF, QD
     Route: 048

REACTIONS (2)
  - MIGRAINE [None]
  - ARTHRALGIA [None]
